FAERS Safety Report 5532747-8 (Version None)
Quarter: 2007Q4

REPORT INFORMATION
  Report Type: 
  Country: None (occurrence: None)
  Receive Date: 20071204
  Receipt Date: 20071123
  Transmission Date: 20080405
  Serious: Yes (Hospitalization)
  Sender: FDA-Public Use
  Company Number: PHHY2007MX00610

PATIENT
  Age: 60 Year
  Sex: Female

DRUGS (1)
  1. STALEVO 100 [Suspect]
     Indication: PARKINSON'S DISEASE
     Dosage: 4 TABLETS (100/25/200 MG)/DAY
     Route: 048
     Dates: start: 20070601

REACTIONS (2)
  - FALL [None]
  - LIMB INJURY [None]
